FAERS Safety Report 23555836 (Version 2)
Quarter: 2024Q3

REPORT INFORMATION
  Report Type: Report from Study
  Country: CA (occurrence: CA)
  Receive Date: 20240222
  Receipt Date: 20240821
  Transmission Date: 20241016
  Serious: Yes (Other)
  Sender: TAKEDA
  Company Number: CA-TAKEDA-2023TUS011244

PATIENT
  Sex: Female
  Weight: 60 kg

DRUGS (5)
  1. HUMAN IMMUNOGLOBULIN G [Suspect]
     Active Substance: HUMAN IMMUNOGLOBULIN G
     Indication: Combined immunodeficiency
     Dosage: 7 GRAM, 1/WEEK
     Route: 058
     Dates: start: 20180101
  2. HUMAN IMMUNOGLOBULIN G [Suspect]
     Active Substance: HUMAN IMMUNOGLOBULIN G
     Indication: Primary immunodeficiency syndrome
     Dosage: 7 GRAM, 1/WEEK
     Route: 050
  3. ULTRAVATE [Concomitant]
     Active Substance: HALOBETASOL PROPIONATE
     Dosage: UNK
     Route: 061
  4. MOMETASONE [Concomitant]
     Active Substance: MOMETASONE
     Dosage: UNK
     Route: 045
  5. BISOPROLOL [Concomitant]
     Active Substance: BISOPROLOL\BISOPROLOL FUMARATE
     Dosage: 2.5 MILLIGRAM, QD
     Route: 065

REACTIONS (13)
  - Atrial fibrillation [Unknown]
  - Hypogammaglobulinaemia [Unknown]
  - Eye discharge [Unknown]
  - Psoriasis [Unknown]
  - COVID-19 [Recovered/Resolved]
  - Tinnitus [Unknown]
  - Upper-airway cough syndrome [Unknown]
  - Heart rate increased [Unknown]
  - Sinus pain [Unknown]
  - CD4 lymphocytes decreased [Unknown]
  - Seasonal allergy [Unknown]
  - Rhinitis [Unknown]
  - Sinusitis [Unknown]
